FAERS Safety Report 17930251 (Version 4)
Quarter: 2021Q4

REPORT INFORMATION
  Report Type: Spontaneous
  Country: US (occurrence: US)
  Receive Date: 20200623
  Receipt Date: 20211217
  Transmission Date: 20220303
  Serious: Yes (Other)
  Sender: FDA-Public Use
  Company Number: US-GILEAD-2020-0474566

PATIENT
  Age: 61 Year
  Sex: Female
  Weight: 47.166 kg

DRUGS (58)
  1. VIREAD [Suspect]
     Active Substance: TENOFOVIR DISOPROXIL FUMARATE
     Indication: HIV infection
     Dosage: UNK
     Route: 048
     Dates: start: 20040101, end: 20171231
  2. VIREAD [Suspect]
     Active Substance: TENOFOVIR DISOPROXIL FUMARATE
     Dosage: UNK
     Route: 065
     Dates: start: 20021231, end: 20130815
  3. TRUVADA [Suspect]
     Active Substance: EMTRICITABINE\TENOFOVIR DISOPROXIL FUMARATE
     Indication: HIV infection
     Dosage: UNK
     Route: 048
     Dates: start: 20040901, end: 20171231
  4. TRUVADA [Suspect]
     Active Substance: EMTRICITABINE\TENOFOVIR DISOPROXIL FUMARATE
     Dosage: UNK
     Route: 065
     Dates: start: 20130815, end: 20170110
  5. ATRIPLA [Suspect]
     Active Substance: EFAVIRENZ\EMTRICITABINE\TENOFOVIR DISOPROXIL FUMARATE
     Indication: HIV infection
     Dosage: UNK
     Route: 048
     Dates: start: 20060801, end: 20171231
  6. ATRIPLA [Suspect]
     Active Substance: EFAVIRENZ\EMTRICITABINE\TENOFOVIR DISOPROXIL FUMARATE
     Dosage: UNK
     Route: 065
     Dates: start: 200601, end: 20130815
  7. DESCOVY [Concomitant]
     Active Substance: EMTRICITABINE\TENOFOVIR ALAFENAMIDE FUMARATE
  8. CORTISONE [Concomitant]
     Active Substance: CORTISONE
     Indication: Intervertebral disc degeneration
  9. CORTISONE [Concomitant]
     Active Substance: CORTISONE
     Indication: Arthritis
  10. LEVOTHYROXINE [Concomitant]
     Active Substance: LEVOTHYROXINE
     Indication: Hypothyroidism
  11. MIRTAZAPINE [Concomitant]
     Active Substance: MIRTAZAPINE
     Indication: Major depression
  12. FLUOXETINE [Concomitant]
     Active Substance: FLUOXETINE HYDROCHLORIDE
     Indication: Major depression
  13. LUNESTA [Concomitant]
     Active Substance: ESZOPICLONE
     Indication: Major depression
  14. ALBUTEROL [Concomitant]
     Active Substance: ALBUTEROL
     Indication: Chronic obstructive pulmonary disease
  15. ACETAMINOPHEN [Concomitant]
     Active Substance: ACETAMINOPHEN
  16. ALDACTONE [Concomitant]
     Active Substance: SPIRONOLACTONE
  17. AMPICILLIN [Concomitant]
     Active Substance: AMPICILLIN
  18. ARMOUR THYROID [Concomitant]
     Active Substance: THYROID, PORCINE
  19. ASPIRIN [Concomitant]
     Active Substance: ASPIRIN
  20. ATORVASTATIN [Concomitant]
     Active Substance: ATORVASTATIN
  21. AZULFIDINE [Concomitant]
     Active Substance: SULFASALAZINE
  22. BACTRIM [Concomitant]
     Active Substance: SULFAMETHOXAZOLE\TRIMETHOPRIM
  23. BUMEX [Concomitant]
     Active Substance: BUMETANIDE
  24. CEFTAZIDIME [Concomitant]
     Active Substance: CEFTAZIDIME
  25. CIMETIDINE [Concomitant]
     Active Substance: CIMETIDINE
  26. CISPLATIN [Concomitant]
     Active Substance: CISPLATIN
  27. CRESTOR [Concomitant]
     Active Substance: ROSUVASTATIN CALCIUM
  28. DIURIL [CHLOROTHIAZIDE SODIUM] [Concomitant]
  29. DOMPERIDONE\RABEPRAZOLE [Concomitant]
     Active Substance: DOMPERIDONE\RABEPRAZOLE
  30. DUEXIS [Concomitant]
     Active Substance: FAMOTIDINE\IBUPROFEN
  31. DYAZIDE [Concomitant]
     Active Substance: HYDROCHLOROTHIAZIDE\TRIAMTERENE
  32. FLEET LAXATIVE [Concomitant]
  33. FLOMAX [Concomitant]
     Active Substance: TAMSULOSIN HYDROCHLORIDE
  34. GANCICLOVIR [Concomitant]
     Active Substance: GANCICLOVIR
  35. GEOCILLIN [Concomitant]
     Active Substance: CARBENICILLIN INDANYL SODIUM
  36. HEPARIN [Concomitant]
     Active Substance: HEPARIN SODIUM
  37. INDINAVIR [Concomitant]
     Active Substance: INDINAVIR
  38. LASIX [Concomitant]
     Active Substance: FUROSEMIDE
  39. LITHIUM [Concomitant]
     Active Substance: LITHIUM
  40. LEVOFLOXACIN [Concomitant]
     Active Substance: LEVOFLOXACIN
  41. METHYLPREDNISOLONE [Concomitant]
     Active Substance: METHYLPREDNISOLONE
  42. MITOMYCIN C [Concomitant]
     Active Substance: MITOMYCIN
  43. PENICILLIN [Concomitant]
     Active Substance: PENICILLIN
  44. PREDNISOLONE [Concomitant]
     Active Substance: PREDNISOLONE
  45. PREDNISONE [Concomitant]
     Active Substance: PREDNISONE
  46. RANITIDINE [Concomitant]
     Active Substance: RANITIDINE
  47. NORVIR [Concomitant]
     Active Substance: RITONAVIR
     Indication: HIV infection
  48. RETROVIR [Concomitant]
     Active Substance: ZIDOVUDINE
     Indication: HIV infection
  49. REYATAZ [Concomitant]
     Active Substance: ATAZANAVIR SULFATE
     Indication: HIV infection
  50. SUSTIVA [Concomitant]
     Active Substance: EFAVIRENZ
     Indication: HIV infection
  51. TIVICAY [Concomitant]
     Active Substance: DOLUTEGRAVIR SODIUM
     Indication: HIV infection
  52. TRIUMEQ [Concomitant]
     Active Substance: ABACAVIR SULFATE\DOLUTEGRAVIR SODIUM\LAMIVUDINE
     Indication: HIV infection
  53. OXYCODONE HYDROCHLORIDE [Concomitant]
     Active Substance: OXYCODONE HYDROCHLORIDE
  54. XANAX [Concomitant]
     Active Substance: ALPRAZOLAM
  55. TRIAMTERENE AND HYDROCHLOROTHIAZIDE [Concomitant]
     Active Substance: HYDROCHLOROTHIAZIDE\TRIAMTERENE
     Indication: Hypertension
  56. FENOFIBRATE [Concomitant]
     Active Substance: FENOFIBRATE
  57. VOLTAREN DOLO [DICLOFENAC DIETHYLAMINE] [Concomitant]
  58. FLUTICASONE [Concomitant]
     Active Substance: FLUTICASONE

REACTIONS (12)
  - Chronic kidney disease [Not Recovered/Not Resolved]
  - Multiple fractures [Unknown]
  - End stage renal disease [Not Recovered/Not Resolved]
  - Osteoporosis [Not Recovered/Not Resolved]
  - Bone density decreased [Unknown]
  - Tooth loss [Unknown]
  - Osteopenia [Unknown]
  - Chronic kidney disease [Unknown]
  - Hip fracture [Unknown]
  - Foot fracture [Unknown]
  - Pain [Unknown]
  - Emotional distress [Unknown]

NARRATIVE: CASE EVENT DATE: 20150101
